FAERS Safety Report 8771440 (Version 2)
Quarter: 2013Q4

REPORT INFORMATION
  Report Type: Spontaneous
  Country: US (occurrence: US)
  Receive Date: 20120905
  Receipt Date: 20131101
  Transmission Date: 20140711
  Serious: No
  Sender: FDA-Public Use
  Company Number: US-009507513-1208USA012522

PATIENT
  Age: 73 Year
  Sex: Female

DRUGS (3)
  1. DULERA [Suspect]
     Dosage: 200 MICROGRAM/5 MCG, BID
     Route: 055
     Dates: start: 201208
  2. SPIRIVA [Concomitant]
  3. SINGULAIR [Concomitant]

REACTIONS (2)
  - Dry mouth [Not Recovered/Not Resolved]
  - Throat irritation [Not Recovered/Not Resolved]
